FAERS Safety Report 13616072 (Version 2)
Quarter: 2018Q2

REPORT INFORMATION
  Report Type: Spontaneous
  Country: US (occurrence: US)
  Receive Date: 20170606
  Receipt Date: 20180521
  Transmission Date: 20180711
  Serious: No
  Sender: FDA-Public Use
  Company Number: US-TEVA-736808ACC

PATIENT
  Sex: Male
  Weight: 93.44 kg

DRUGS (2)
  1. CYCLOBENZAPRINE. [Suspect]
     Active Substance: CYCLOBENZAPRINE
     Indication: MUSCLE RELAXANT THERAPY
     Route: 065
     Dates: start: 2004, end: 2004
  2. NORTRIPTYLINE [Concomitant]
     Active Substance: NORTRIPTYLINE
     Dates: start: 200402, end: 2004

REACTIONS (2)
  - Dizziness [Unknown]
  - Somnolence [Unknown]
